FAERS Safety Report 9520019 (Version 3)
Quarter: 2013Q4

REPORT INFORMATION
  Report Type: Spontaneous
  Country: US (occurrence: US)
  Receive Date: 20130912
  Receipt Date: 20131021
  Transmission Date: 20140711
  Serious: Yes (Hospitalization)
  Sender: FDA-Public Use
  Company Number: US-UCBSA-096719

PATIENT
  Age: 46 Year
  Sex: Female
  Weight: 104 kg

DRUGS (11)
  1. CIMZIA [Suspect]
     Indication: CROHN^S DISEASE
     Dates: start: 2011, end: 20130815
  2. CIPRO [Concomitant]
  3. GENTAMYCIN IV [Concomitant]
     Route: 042
  4. TOBRAMYCIN IV [Concomitant]
     Route: 042
  5. IMMURAN [Concomitant]
     Indication: CROHN^S DISEASE
     Dosage: 100 MG
  6. CALCIUM WITH VIT D [Concomitant]
     Dosage: 600 MG WITH 200IU
  7. CLONAZEPAM [Concomitant]
     Indication: ANXIETY
  8. COLESTIPOL [Concomitant]
     Dosage: 1 GM 2 PILLS
  9. VITAMIN B12 [Concomitant]
  10. DICYCLOMINE [Concomitant]
  11. IMMODIUM [Concomitant]
     Dosage: 2 MG CAP

REACTIONS (3)
  - Cystitis [Recovered/Resolved]
  - Nephrolithiasis [Not Recovered/Not Resolved]
  - Urinary tract infection [Unknown]
